FAERS Safety Report 5153314-4 (Version None)
Quarter: 2006Q4

REPORT INFORMATION
  Report Type: 
  Country: None (occurrence: None)
  Receive Date: 20061117
  Receipt Date: 20060927
  Transmission Date: 20070319
  Serious: Yes (Disabling, Other)
  Sender: FDA-Public Use
  Company Number: US-BRISTOL-MYERS SQUIBB COMPANY-13522719

PATIENT
  Age: 68 Year
  Sex: Female

DRUGS (9)
  1. KENALOG [Suspect]
     Indication: MACULAR OEDEMA
     Dosage: 4 MG IN 0.1 CC
     Route: 031
     Dates: start: 20060519, end: 20060519
  2. INSULIN [Concomitant]
  3. PRINIVIL [Concomitant]
  4. ZOCOR [Concomitant]
  5. ASPIRIN [Concomitant]
  6. XANAX [Concomitant]
  7. ULTRAM [Concomitant]
  8. SYNTHROID [Concomitant]
  9. NEXIUM [Concomitant]

REACTIONS (1)
  - ENDOPHTHALMITIS [None]
